FAERS Safety Report 25607406 (Version 2)
Quarter: 2025Q4

REPORT INFORMATION
  Report Type: Spontaneous
  Country: EU (occurrence: EU)
  Receive Date: 20250725
  Receipt Date: 20251010
  Transmission Date: 20260117
  Serious: Yes (Life-Threatening, Congenital Anomaly, Other)
  Sender: AMGEN
  Company Number: None

PATIENT
  Sex: Female
  Weight: 4.05 kg

DRUGS (1)
  1. ADALIMUMAB [Suspect]
     Active Substance: ADALIMUMAB
     Indication: Ankylosing spondylitis
     Dosage: ACCORDING TO THE MOTHER^S GENERAL PRACTITIONER THE MOTHER STARTED TREATMENT WITH AMGEVITA BEFORE JAN
     Route: 064
     Dates: start: 202501

REACTIONS (3)
  - Congenital infection [Recovered/Resolved]
  - Beta haemolytic streptococcal infection [Recovered/Resolved]
  - Foetal exposure during pregnancy [Recovered/Resolved]

NARRATIVE: CASE EVENT DATE: 20250607
